FAERS Safety Report 14327775 (Version 1)
Quarter: 2017Q4

REPORT INFORMATION
  Report Type: Spontaneous
  Country: US (occurrence: US)
  Receive Date: 20171226
  Receipt Date: 20171226
  Transmission Date: 20180321
  Serious: No
  Sender: FDA-Public Use
  Company Number: None

PATIENT
  Age: 37 Year
  Sex: Female

DRUGS (1)
  1. IMATINIB MES TAB 400MG [Suspect]
     Active Substance: IMATINIB
     Route: 048

REACTIONS (8)
  - Bone pain [None]
  - Weight decreased [None]
  - Decreased appetite [None]
  - Eye swelling [None]
  - Nausea [None]
  - Menstrual disorder [None]
  - Rash [None]
  - Feeling of body temperature change [None]

NARRATIVE: CASE EVENT DATE: 20171129
